FAERS Safety Report 8421842-1 (Version None)
Quarter: 2012Q2

REPORT INFORMATION
  Report Type: 
  Country: None (occurrence: None)
  Receive Date: 20120608
  Receipt Date: 20120528
  Transmission Date: 20120825
  Serious: Yes (Other)
  Sender: FDA-Public Use
  Company Number: ES-CELGENEUS-144-21660-12053221

PATIENT
  Sex: Female

DRUGS (4)
  1. IRON [Concomitant]
     Route: 041
  2. ABRAXANE [Suspect]
     Route: 065
  3. NEUPOGEN [Concomitant]
     Route: 065
  4. WHOLE BLOOD [Concomitant]
     Route: 065

REACTIONS (6)
  - THROMBOCYTOPENIA [None]
  - DEAFNESS [None]
  - CYSTITIS [None]
  - ALOPECIA [None]
  - FATIGUE [None]
  - ANAEMIA [None]
